FAERS Safety Report 8003596-6 (Version None)
Quarter: 2011Q4

REPORT INFORMATION
  Report Type: 
  Country: None (occurrence: None)
  Receive Date: 20111222
  Receipt Date: 20111219
  Transmission Date: 20120403
  Serious: Yes (Life-Threatening, Hospitalization, Other)
  Sender: FDA-Public Use
  Company Number: JP-PFIZER INC-2011307956

PATIENT
  Age: 70 Year
  Sex: Male

DRUGS (10)
  1. RHEUMATREX [Suspect]
     Indication: RHEUMATOID ARTHRITIS
     Dosage: 4 MG, WEEKLY
     Route: 048
     Dates: start: 20040412, end: 20111109
  2. MELOXICAM [Concomitant]
     Dosage: 10 MG DAILY
     Route: 048
     Dates: start: 20110706, end: 20111109
  3. PROGRAF [Concomitant]
     Dosage: 1 MG DAILY
     Route: 048
     Dates: start: 20060424, end: 20111109
  4. LANSOPRAZOLE [Concomitant]
     Dosage: 15 MG DAILY
     Route: 048
     Dates: start: 20100908, end: 20111109
  5. DIOVAN [Concomitant]
     Dosage: 160 MG DAILY
     Route: 048
     Dates: start: 20061002, end: 20111109
  6. AZULFIDINE [Suspect]
     Indication: RHEUMATOID ARTHRITIS
     Dosage: 250 MG DAILY
     Route: 048
     Dates: start: 20040412, end: 20111109
  7. RECALBON [Suspect]
     Indication: RHEUMATOID ARTHRITIS
     Dosage: 50 MG DAILY
     Route: 048
     Dates: start: 20111012, end: 20111109
  8. ALLOPURINOL [Concomitant]
     Dosage: 100 MG DAILY
     Route: 048
     Dates: start: 20040412, end: 20111109
  9. REBAMIPIDE [Concomitant]
     Dosage: 300 MG DAILY
     Route: 048
     Dates: start: 20110706, end: 20111109
  10. PREDNISOLONE [Concomitant]
     Dosage: 4.5 MG DAILY
     Route: 048
     Dates: start: 20040807, end: 20111109

REACTIONS (1)
  - CEREBRAL INFARCTION [None]
